FAERS Safety Report 9434932 (Version 2)
Quarter: 2014Q1

REPORT INFORMATION
  Report Type: Report from Study
  Country: US (occurrence: US)
  Receive Date: 20130801
  Receipt Date: 20140116
  Transmission Date: 20141002
  Serious: Yes (Hospitalization, Other)
  Sender: FDA-Public Use
  Company Number: US-009507513-1307USA015792

PATIENT
  Age: 60 Year
  Sex: Female
  Weight: 81.5 kg

DRUGS (10)
  1. REBETOL [Suspect]
     Indication: HEPATITIS C
     Dosage: 600 MG, BID
     Route: 048
     Dates: start: 20121115
  2. PEGASYS [Suspect]
     Indication: HEPATITIS C
     Dosage: 180 MICROGRAM, QW
     Dates: start: 20121115
  3. TELAPREVIR [Suspect]
     Indication: HEPATITIS C
     Dosage: UNK
     Dates: start: 20121115
  4. LANTUS [Concomitant]
  5. NOVOLOG [Concomitant]
  6. AMLODIPINE [Concomitant]
  7. SPIRONOLACTONE [Concomitant]
  8. LISINOPRIL [Concomitant]
  9. NORCO [Concomitant]
  10. ZOFRAN [Concomitant]

REACTIONS (5)
  - Renal failure acute [Unknown]
  - Chest pain [Unknown]
  - Depression [Unknown]
  - Dehydration [Unknown]
  - Hyponatraemia [Unknown]
